FAERS Safety Report 5582887-2 (Version None)
Quarter: 2007Q4

REPORT INFORMATION
  Report Type: 
  Country: None (occurrence: None)
  Receive Date: 20071231
  Receipt Date: 20071221
  Transmission Date: 20080405
  Serious: Yes (Other)
  Sender: FDA-Public Use
  Company Number: 2007SP025370

PATIENT
  Age: 55 Year
  Sex: Male
  Weight: 55 kg

DRUGS (2)
  1. PEG-INTRON [Suspect]
     Indication: HEPATITIS C
     Dosage: ;SC
     Route: 058
     Dates: start: 20070807, end: 20070908
  2. REBETOL [Suspect]
     Indication: HEPATITIS C
     Dosage: ;PO
     Route: 048
     Dates: start: 20070807, end: 20070908

REACTIONS (4)
  - ADRENAL INSUFFICIENCY [None]
  - ALDOSTERONE URINE DECREASED [None]
  - HYPONATRAEMIA [None]
  - HYPOTHYROIDISM [None]
